FAERS Safety Report 8073468-X (Version None)
Quarter: 2012Q1

REPORT INFORMATION
  Report Type: 
  Country: None (occurrence: None)
  Receive Date: 20120126
  Receipt Date: 20120126
  Transmission Date: 20120608
  Serious: Yes (Hospitalization)
  Sender: FDA-Public Use
  Company Number: None

PATIENT
  Age: 45 Year
  Sex: Male
  Weight: 84 kg

DRUGS (1)
  1. IBUPROFEN [Suspect]
     Indication: FLANK PAIN
     Dosage: 4-6 TABS
     Route: 048
     Dates: start: 20111223, end: 20111227

REACTIONS (6)
  - RENAL FAILURE ACUTE [None]
  - FLANK PAIN [None]
  - DIALYSIS [None]
  - RECTAL HAEMORRHAGE [None]
  - HAEMOPTYSIS [None]
  - BLOOD URINE PRESENT [None]
